FAERS Safety Report 8958112 (Version 3)
Quarter: 2013Q4

REPORT INFORMATION
  Report Type: Spontaneous
  Country: US (occurrence: US)
  Receive Date: 20121211
  Receipt Date: 20131109
  Transmission Date: 20140711
  Serious: Yes (Other)
  Sender: FDA-Public Use
  Company Number: US-JNJFOC-20121201219

PATIENT
  Age: 71 Year
  Sex: Male
  Weight: 88.45 kg

DRUGS (5)
  1. ROGAINE FOR MEN EXTRA STRENGTH [Suspect]
     Route: 061
  2. ROGAINE FOR MEN EXTRA STRENGTH [Suspect]
     Indication: HAIR GROWTH ABNORMAL
     Route: 061
     Dates: start: 20121029, end: 20121126
  3. LISINOPRIL [Concomitant]
     Indication: BLOOD PRESSURE
     Route: 065
     Dates: start: 2008
  4. AGGRENOX [Concomitant]
     Indication: ANTICOAGULANT THERAPY
     Route: 065
     Dates: start: 2008
  5. PRAVASTATIN [Concomitant]
     Indication: BLOOD CHOLESTEROL
     Route: 065
     Dates: start: 2008

REACTIONS (10)
  - Eye swelling [Recovered/Resolved]
  - Application site dryness [Recovering/Resolving]
  - Application site discharge [Recovered/Resolved]
  - Alopecia [Unknown]
  - Hair texture abnormal [Recovered/Resolved]
  - Medication residue present [Unknown]
  - Hypersensitivity [Unknown]
  - Swelling face [Recovered/Resolved]
  - Dandruff [Recovering/Resolving]
  - Sunburn [Recovered/Resolved]
